FAERS Safety Report 7623242-0 (Version None)
Quarter: 2011Q3

REPORT INFORMATION
  Report Type: 
  Country: None (occurrence: None)
  Receive Date: 20110720
  Receipt Date: 20110708
  Transmission Date: 20111222
  Serious: Yes (Hospitalization)
  Sender: FDA-Public Use
  Company Number: GB-JNJFOC-20110704195

PATIENT
  Sex: Female
  Weight: 49.9 kg

DRUGS (8)
  1. AZATHIOPRINE [Concomitant]
  2. OMEPRAZOLE [Concomitant]
  3. HUMIRA [Suspect]
     Indication: PRODUCT USED FOR UNKNOWN INDICATION
     Dates: start: 20091002
  4. CALCIUM + D3 [Concomitant]
  5. REMICADE [Suspect]
     Indication: CROHN'S DISEASE
     Route: 042
     Dates: start: 20081208, end: 20090807
  6. HUMIRA [Suspect]
     Dates: start: 20110624
  7. ONDANSETRON [Concomitant]
  8. ACETAMINOPHEN [Concomitant]

REACTIONS (1)
  - CLOSTRIDIAL INFECTION [None]
